FAERS Safety Report 20235825 (Version 5)
Quarter: 2022Q2

REPORT INFORMATION
  Report Type: Spontaneous
  Country: CA (occurrence: CA)
  Receive Date: 20211228
  Receipt Date: 20220627
  Transmission Date: 20220720
  Serious: Yes (Other)
  Sender: FDA-Public Use
  Company Number: CA-CELLTRION INC.-2021CA017788

PATIENT

DRUGS (7)
  1. INFLECTRA [Suspect]
     Active Substance: INFLIXIMAB-DYYB
     Indication: Psoriatic arthropathy
     Dosage: 600 MG/ Q 0, 2, 6 THEN EVERY 8 WEEKS
     Route: 041
     Dates: start: 20160509, end: 20180201
  2. INFLECTRA [Suspect]
     Active Substance: INFLIXIMAB-DYYB
     Dosage: 5 MG/KG EVERY 7 WEEKS
     Route: 041
     Dates: start: 20181009, end: 20200917
  3. INFLECTRA [Suspect]
     Active Substance: INFLIXIMAB-DYYB
     Dosage: 5 MG/KG EVERY 7 WEEKS
     Route: 042
     Dates: start: 20210413, end: 20211102
  4. INFLECTRA [Suspect]
     Active Substance: INFLIXIMAB-DYYB
     Dosage: 5 MG/KG EVERY 7 WEEKS
     Route: 042
     Dates: start: 20211102
  5. INFLECTRA [Suspect]
     Active Substance: INFLIXIMAB-DYYB
     Dosage: 5 MG/KG EVERY 7 WEEKS
     Route: 042
     Dates: start: 20220420
  6. INFLECTRA [Suspect]
     Active Substance: INFLIXIMAB-DYYB
     Dosage: 5 MG/KG EVERY 7 WEEKS
     Route: 042
     Dates: start: 20220613
  7. METFORMIN [Concomitant]
     Active Substance: METFORMIN HYDROCHLORIDE
     Dosage: UNK

REACTIONS (13)
  - Cellulitis [Recovering/Resolving]
  - Nasopharyngitis [Not Recovered/Not Resolved]
  - Swelling [Unknown]
  - Pain [Unknown]
  - Pain in extremity [Unknown]
  - Dyskinesia [Unknown]
  - Weight bearing difficulty [Unknown]
  - Erythema [Unknown]
  - Weight increased [Unknown]
  - Peripheral swelling [Unknown]
  - Dyspnoea [Unknown]
  - Inappropriate schedule of product administration [Unknown]
  - Off label use [Unknown]

NARRATIVE: CASE EVENT DATE: 20181009
